FAERS Safety Report 7713856-1 (Version None)
Quarter: 2011Q3

REPORT INFORMATION
  Report Type: 
  Country: None (occurrence: None)
  Receive Date: 20110826
  Receipt Date: 20110817
  Transmission Date: 20111222
  Serious: Yes (Hospitalization, Other)
  Sender: FDA-Public Use
  Company Number: US-ELI_LILLY_AND_COMPANY-US200606001137

PATIENT
  Sex: Male

DRUGS (6)
  1. SOMA [Concomitant]
     Dosage: UNK, UNKNOWN
  2. OTHER CARDIAC PREPARATIONS [Concomitant]
     Dosage: UNK
  3. HUMULIN 70/30 [Suspect]
     Indication: TYPE 2 DIABETES MELLITUS
     Dosage: 100 U, DAILY (1/D)
     Dates: start: 19960101
  4. PERCOCET [Concomitant]
     Indication: PAIN
     Dosage: UNK, UNKNOWN
  5. NITROGLYCERIN [Concomitant]
     Dosage: UNK, PRN
  6. NEXIUM [Concomitant]
     Dosage: UNK, UNKNOWN

REACTIONS (10)
  - ROTATOR CUFF REPAIR [None]
  - NEPHROLITHIASIS [None]
  - KIDNEY INFECTION [None]
  - INTESTINAL PERFORATION [None]
  - CHEST PAIN [None]
  - HIP ARTHROPLASTY [None]
  - JOINT INJURY [None]
  - ARTHRALGIA [None]
  - CORONARY ARTERY DISEASE [None]
  - CEREBROVASCULAR ACCIDENT [None]
